FAERS Safety Report 21965815 (Version 5)
Quarter: 2023Q2

REPORT INFORMATION
  Report Type: Report from Study
  Country: CA (occurrence: CA)
  Receive Date: 20230208
  Receipt Date: 20230608
  Transmission Date: 20230722
  Serious: Yes (Other)
  Sender: FDA-Public Use
  Company Number: CA-002147023-NVSC2022CA179836

PATIENT
  Sex: Male

DRUGS (2)
  1. MAYZENT [Suspect]
     Active Substance: SIPONIMOD
     Indication: Secondary progressive multiple sclerosis
     Dosage: 1 MG (0.25MG X4=1MG)
     Route: 048
     Dates: start: 20220801
  2. MAYZENT [Suspect]
     Active Substance: SIPONIMOD
     Dosage: UNK (MAINTENANCE DOSE)
     Route: 048
     Dates: start: 20230214

REACTIONS (8)
  - Blood pressure fluctuation [Unknown]
  - Hypertension [Unknown]
  - Arthralgia [Unknown]
  - COVID-19 [Unknown]
  - Pyrexia [Unknown]
  - Cough [Unknown]
  - Nasopharyngitis [Unknown]
  - Headache [Recovered/Resolved]

NARRATIVE: CASE EVENT DATE: 20220818
